FAERS Safety Report 6356093-8 (Version None)
Quarter: 2009Q3

REPORT INFORMATION
  Report Type: 
  Country: None (occurrence: None)
  Receive Date: 20090915
  Receipt Date: 20090911
  Transmission Date: 20100115
  Serious: Yes (Other)
  Sender: FDA-Public Use
  Company Number: DE-BRISTOL-MYERS SQUIBB COMPANY-14726673

PATIENT
  Age: 38 Year
  Sex: Female

DRUGS (4)
  1. COUMADIN [Suspect]
     Dosage: 1 DF- 2 HANDFUL TABS
     Route: 048
     Dates: start: 20090803, end: 20090803
  2. AMLODIPINE [Suspect]
     Route: 048
     Dates: start: 20090803, end: 20090803
  3. DIOVAN [Suspect]
     Route: 048
     Dates: start: 20090803, end: 20090803
  4. OMEPRAZOL [Suspect]
     Route: 048
     Dates: start: 20090803, end: 20090803

REACTIONS (3)
  - HYPOTENSION [None]
  - SUICIDE ATTEMPT [None]
  - TACHYCARDIA [None]
